FAERS Safety Report 4934921-8 (Version None)
Quarter: 2006Q1

REPORT INFORMATION
  Report Type: 
  Country: None (occurrence: None)
  Receive Date: 20060306
  Receipt Date: 20060306
  Transmission Date: 20060701
  Serious: Yes (Disabling)
  Sender: FDA-Public Use
  Company Number: None

PATIENT
  Age: 44 Year
  Sex: Male

DRUGS (1)
  1. OMNIPAQUE 350 [Suspect]
     Indication: COMPUTERISED TOMOGRAM
     Dosage: 350 MG ONE TIEM IV BOLUS
     Route: 040
     Dates: start: 20060105, end: 20060105

REACTIONS (2)
  - SNEEZING [None]
  - URTICARIA [None]
